FAERS Safety Report 23050446 (Version 3)
Quarter: 2023Q4

REPORT INFORMATION
  Report Type: Spontaneous
  Country: US (occurrence: US)
  Receive Date: 20231010
  Receipt Date: 20231219
  Transmission Date: 20240109
  Serious: Yes (Hospitalization, Other)
  Sender: FDA-Public Use
  Company Number: US-PFIZER INC-PV202300167313

PATIENT
  Age: 75 Year
  Sex: Female
  Weight: 61.224 kg

DRUGS (5)
  1. XELJANZ XR [Suspect]
     Active Substance: TOFACITINIB CITRATE
     Indication: Rheumatoid arthritis
     Dosage: 11 MG ONCE DAY
     Dates: start: 202304
  2. VERAPAMIL HCL [Concomitant]
     Active Substance: VERAPAMIL HYDROCHLORIDE
     Indication: Hypertension
     Dosage: 180 MG, 2X/DAY
     Dates: start: 1980
  3. FOLIC ACID [Concomitant]
     Active Substance: FOLIC ACID
     Dosage: UNK
     Dates: start: 201806
  4. LEFLUNOMIDE [Concomitant]
     Active Substance: LEFLUNOMIDE
     Dosage: 20 MG
     Dates: start: 202304
  5. VITAMIN D3 [Concomitant]
     Active Substance: CHOLECALCIFEROL
     Dosage: UNK
     Dates: start: 201806

REACTIONS (5)
  - Gallbladder disorder [Recovered/Resolved]
  - Pain [Not Recovered/Not Resolved]
  - Cholelithiasis [Unknown]
  - Biliary colic [Unknown]
  - Hypertension [Unknown]

NARRATIVE: CASE EVENT DATE: 20230901
